FAERS Safety Report 24041237 (Version 2)
Quarter: 2025Q3

REPORT INFORMATION
  Report Type: Spontaneous
  Country: US (occurrence: US)
  Receive Date: 20240702
  Receipt Date: 20250702
  Transmission Date: 20251020
  Serious: No
  Sender: SAREPTA THERAPEUTICS
  Company Number: US-SAREPTA THERAPEUTICS INC.-SRP2024-004758

PATIENT
  Age: 16 Year
  Sex: Male
  Weight: 93.424 kg

DRUGS (3)
  1. EXONDYS 51 [Suspect]
     Active Substance: ETEPLIRSEN
     Indication: Duchenne muscular dystrophy
     Route: 042
     Dates: end: 20240606
  2. EXONDYS 51 [Suspect]
     Active Substance: ETEPLIRSEN
     Indication: Becker^s muscular dystrophy
  3. METOPROLOL [Concomitant]
     Active Substance: METOPROLOL
     Indication: Cardiac disorder

REACTIONS (3)
  - Poor venous access [Not Recovered/Not Resolved]
  - Pain [Unknown]
  - Device malfunction [Not Recovered/Not Resolved]

NARRATIVE: CASE EVENT DATE: 20240301
